FAERS Safety Report 6229765-3 (Version None)
Quarter: 2009Q2

REPORT INFORMATION
  Report Type: 
  Country: None (occurrence: None)
  Receive Date: 20090615
  Receipt Date: 20090608
  Transmission Date: 20091009
  Serious: Yes (Other)
  Sender: FDA-Public Use
  Company Number: PHHY2009DE11035

PATIENT
  Sex: Female

DRUGS (11)
  1. ZOMETA [Suspect]
     Indication: OSTEOPOROSIS
     Dosage: 4 MG, UNK
     Route: 042
     Dates: start: 20070801, end: 20070801
  2. ZOMETA [Suspect]
     Dosage: 4 MG, UNK
     Route: 042
     Dates: start: 20071101, end: 20071101
  3. ZOMETA [Suspect]
     Dosage: 4 MG, UNK
     Route: 042
     Dates: start: 20080401, end: 20080401
  4. ZOMETA [Suspect]
     Dosage: 4 MG, UNK
     Route: 042
     Dates: start: 20080701, end: 20080701
  5. ZOMETA [Suspect]
     Dosage: 4 MG, UNK
     Route: 042
     Dates: start: 20081001, end: 20081001
  6. ZOMETA [Suspect]
     Dosage: 4 MG, UNK
     Route: 042
     Dates: start: 20090201, end: 20090201
  7. LEXOTANIL [Concomitant]
  8. ATENOLOL [Concomitant]
     Dosage: 50 MG, UNK
  9. OMEPRAZOL [Concomitant]
  10. INSIDON [Concomitant]
     Dosage: UNK
  11. GITYL [Concomitant]

REACTIONS (5)
  - DRUG ADMINISTRATION ERROR [None]
  - GRANULOMA ANNULARE [None]
  - HERPES ZOSTER [None]
  - MUSCLE SPASMS [None]
  - RASH MACULO-PAPULAR [None]
